FAERS Safety Report 11025100 (Version 1)
Quarter: 2015Q2

REPORT INFORMATION
  Report Type: Report from Study
  Country: JP (occurrence: None)
  Receive Date: 20150410
  Receipt Date: 20150410
  Transmission Date: 20150821
  Serious: Yes (Hospitalization, Disabling, Other)
  Sender: FDA-Public Use
  Company Number: 2010JP005248

PATIENT
  Age: 24 Year
  Sex: Female

DRUGS (38)
  1. FOSMICIN-S [Suspect]
     Active Substance: FOSFOMYCIN SODIUM
     Route: 041
     Dates: start: 20111115, end: 20111117
  2. ASPARA POTASSIUM (POTASSIUM ASPARTATE) [Concomitant]
  3. XALACOM (LATANOPROST, TIMOLOL MALEATE) [Concomitant]
  4. AZOPT (BRINZOLAMIDE) [Concomitant]
  5. FLUMETHOLON (FLUOROMETHOLONE) [Concomitant]
  6. NEXIUM [Concomitant]
     Active Substance: ESOMEPRAZOLE MAGNESIUM
  7. BAYASPIRIN (ACETYLSALICYLIC ACID) (ACETYLSALICYLIC ACID) [Concomitant]
     Active Substance: ASPIRIN
  8. CRAVIT (LEVOFLOXACIN) [Concomitant]
  9. FUTHAN (NAFAMOSTAT MESILATE) [Concomitant]
  10. FOSMICIN (FOSFOMYCIN CALCIUM HYDRATE) [Concomitant]
  11. BIOSMIN (BIFIDOBACTERIUM COMBINED DRUG) [Concomitant]
  12. ZETIA [Concomitant]
     Active Substance: EZETIMIBE
  13. FOSMICIN-S [Suspect]
     Active Substance: FOSFOMYCIN SODIUM
     Indication: ENTEROCOLITIS BACTERIAL
     Route: 041
     Dates: start: 20111115, end: 20111117
  14. BERIZYM (LIPASE, PANCREATIN) [Concomitant]
  15. FRAGMIN (DALTEPARIN SODIUM) [Concomitant]
  16. CONIEL (BENIDIPINE HYDROCHLORIDE) [Concomitant]
  17. KENACORT A (TRIAMCINOLONE ACETONIDE) [Concomitant]
  18. TIMOPTOL (TIMOLOL MALEATE) [Concomitant]
  19. PREDNISOLONE (PREDNISOLONE) PER ORAL NOS [Suspect]
     Active Substance: PREDNISOLONE
     Indication: LUPUS NEPHRITIS
     Route: 048
     Dates: end: 20081020
  20. ALFAROL [Concomitant]
     Active Substance: ALFACALCIDOL
  21. LIPITOR [Concomitant]
     Active Substance: ATORVASTATIN CALCIUM
  22. BIOFERMIN R (STREPTOCOCCUS FAECALIS) [Concomitant]
  23. CRAVIT (LEVOFLOXACIN) [Concomitant]
  24. VANCOMYCIN HYDROCHLORIDE. [Concomitant]
     Active Substance: VANCOMYCIN HYDROCHLORIDE
  25. PREDONINE [Suspect]
     Active Substance: PREDNISOLONE\PREDNISOLONE ACETATE\PREDNISOLONE SODIUM SUCCINATE
     Indication: LUPUS NEPHRITIS
     Dates: start: 20100511, end: 20100513
  26. TAKEPRON (LANSOPRAZOLE) [Concomitant]
     Active Substance: LANSOPRAZOLE
  27. EDIROL (ELDECALCITOL) [Concomitant]
  28. LUMIGAN (BIMATOPROST) [Concomitant]
  29. BRONUCK (BROMFENAC SODIUM HYDRATE) [Concomitant]
  30. PROGRAF [Suspect]
     Active Substance: TACROLIMUS\TACROLIMUS ANHYDROUS
     Indication: LUPUS NEPHRITIS
     Route: 048
     Dates: start: 20080828, end: 20081020
  31. FOIPAN (CAMOSTAT MESILATE) [Concomitant]
  32. DIAMOX (ACETAZOLAMIDE) [Concomitant]
  33. SANPILO (PILOCARPINE HYDROCHLORIDE) [Concomitant]
  34. PARIET (RABEPRAZOLE SODIUM) [Concomitant]
  35. ENDOXAN /00021102/ (CYCLOPHOSPHAMIDE MONOHYDRATE) [Concomitant]
  36. MODACIN (CEFTAZIDIME) [Concomitant]
     Active Substance: CEFTAZIDIME
  37. BIO-THREE (CLOSTRIDIUM BUTYRICUM COMBINED DRUG) [Concomitant]
  38. MICARDIS [Concomitant]
     Active Substance: TELMISARTAN

REACTIONS (15)
  - Pseudomembranous colitis [None]
  - Hypercholesterolaemia [None]
  - Conjunctivitis bacterial [None]
  - Pancreatitis acute [None]
  - Condition aggravated [None]
  - Gastritis [None]
  - Enterocolitis bacterial [None]
  - Streptococcus test positive [None]
  - Retinal vein occlusion [None]
  - Glaucoma [None]
  - Clostridium test positive [None]
  - Salmonella test positive [None]
  - Hypertension [None]
  - Enterocolitis [None]
  - Lupus enteritis [None]

NARRATIVE: CASE EVENT DATE: 20090811
